FAERS Safety Report 5264156-3 (Version None)
Quarter: 2007Q1

REPORT INFORMATION
  Report Type: 
  Country: None (occurrence: None)
  Receive Date: 20070313
  Receipt Date: 20070305
  Transmission Date: 20070707
  Serious: Yes (Hospitalization)
  Sender: FDA-Public Use
  Company Number: US-ROXANE LABORATORIES, INC-2007-BP-03025RO

PATIENT
  Age: 87 Year
  Sex: Male

DRUGS (12)
  1. CITALOPRAM HYDROBROMIDE [Suspect]
     Indication: DEPRESSION
     Dosage: 20 MG/DAY
     Route: 048
     Dates: start: 20030902, end: 20030909
  2. VENLAFAXINE HCL [Suspect]
     Indication: DEPRESSION
     Dosage: 75 MG/DAY
     Route: 048
     Dates: start: 20031101, end: 20031201
  3. LOSARTAN POSTASSIUM [Concomitant]
     Route: 048
  4. OMEPRAZOLE [Concomitant]
     Route: 048
  5. ALLOPURINOL [Concomitant]
     Route: 048
  6. CLOPIDROGEL [Concomitant]
     Route: 048
  7. CARVEDILOL [Concomitant]
     Route: 048
  8. SIMVASTATIN [Concomitant]
     Route: 048
  9. ISOSORBIDE MONONITRATE [Concomitant]
     Route: 048
  10. TIMOLOL OPTHALMIC DROPS [Concomitant]
     Route: 031
  11. TEBETANE [Concomitant]
     Indication: PROSTATIC DISORDER
     Route: 048
  12. ALPRAZOLAM [Concomitant]
     Route: 048

REACTIONS (4)
  - ASTHENIA [None]
  - HYPONATRAEMIA [None]
  - INAPPROPRIATE ANTIDIURETIC HORMONE SECRETION [None]
  - WEIGHT DECREASED [None]
